FAERS Safety Report 8088836-X (Version None)
Quarter: 2012Q1

REPORT INFORMATION
  Report Type: 
  Country: None (occurrence: None)
  Receive Date: 20120128
  Receipt Date: 20110406
  Transmission Date: 20120608
  Serious: No
  Sender: FDA-Public Use
  Company Number: US-ABBOTT-11P-163-0717011-00

PATIENT
  Sex: Male
  Weight: 87.168 kg

DRUGS (2)
  1. HUMIRA [Suspect]
     Indication: CROHN'S DISEASE
     Route: 058
     Dates: start: 20110201
  2. HUMIRA [Suspect]
     Route: 058

REACTIONS (3)
  - COUGH [None]
  - NASOPHARYNGITIS [None]
  - INJECTION SITE PAIN [None]
